FAERS Safety Report 11882419 (Version 1)
Quarter: 2015Q4

REPORT INFORMATION
  Report Type: Spontaneous
  Country: US (occurrence: US)
  Receive Date: 20151231
  Receipt Date: 20151231
  Transmission Date: 20160305
  Serious: No
  Sender: FDA-Public Use
  Company Number: US-PFIZER INC-2015431231

PATIENT
  Sex: Female

DRUGS (5)
  1. TECFIDERA [Suspect]
     Active Substance: DIMETHYL FUMARATE
     Dosage: UNK
  2. REBIF [Suspect]
     Active Substance: INTERFERON BETA-1A
     Dosage: UNK
  3. MORPHINE SULFATE. [Suspect]
     Active Substance: MORPHINE SULFATE
     Dosage: UNK
     Route: 042
  4. AVONEX [Suspect]
     Active Substance: INTERFERON BETA-1A
     Dosage: UNK
  5. COPAXONE [Suspect]
     Active Substance: GLATIRAMER ACETATE
     Dosage: UNK

REACTIONS (1)
  - Drug hypersensitivity [Unknown]
